FAERS Safety Report 23492782 (Version 3)
Quarter: 2024Q1

REPORT INFORMATION
  Report Type: Spontaneous
  Country: PL (occurrence: PL)
  Receive Date: 20240207
  Receipt Date: 20240229
  Transmission Date: 20240410
  Serious: Yes (Hospitalization, Other)
  Sender: FDA-Public Use
  Company Number: None

PATIENT
  Age: 5 Year
  Sex: Male

DRUGS (8)
  1. IBUPROFEN [Suspect]
     Active Substance: IBUPROFEN
     Indication: Varicella
     Dosage: 5 MILLIGRAM/KILOGRAM, TID (EVERY 8 HOUR)
     Route: 065
  2. BENZOCAINE\MENTHOL\ZINC OXIDE [Suspect]
     Active Substance: BENZOCAINE\MENTHOL\ZINC OXIDE
     Indication: Varicella
     Dosage: UNK (LIQUID POWDER)
     Route: 065
  3. ACYCLOVIR [Concomitant]
     Active Substance: ACYCLOVIR
     Indication: Varicella
     Dosage: UNK
     Route: 042
  4. CEFOTAXIME [Concomitant]
     Active Substance: CEFOTAXIME SODIUM
     Indication: Evidence based treatment
     Dosage: UNK
     Route: 065
  5. DIMETHINDENE [Concomitant]
     Active Substance: DIMETHINDENE
     Indication: Evidence based treatment
     Dosage: UNK
     Route: 065
  6. OCTENIDINE [Concomitant]
     Active Substance: OCTENIDINE
     Indication: Evidence based treatment
     Dosage: UNK
     Route: 061
  7. ACETAMINOPHEN [Concomitant]
     Active Substance: ACETAMINOPHEN
     Indication: Evidence based treatment
     Dosage: UNK
     Route: 065
  8. VANCOMYCIN [Concomitant]
     Active Substance: VANCOMYCIN
     Indication: Evidence based treatment
     Dosage: UNK
     Route: 065

REACTIONS (4)
  - Deep vein thrombosis [Not Recovered/Not Resolved]
  - Soft tissue infection [Not Recovered/Not Resolved]
  - Superinfection bacterial [Recovered/Resolved]
  - Streptococcal sepsis [Recovered/Resolved]
